FAERS Safety Report 24611522 (Version 1)
Quarter: 2024Q4

REPORT INFORMATION
  Report Type: Report from Study
  Country: US (occurrence: US)
  Receive Date: 20241113
  Receipt Date: 20241113
  Transmission Date: 20250115
  Serious: No
  Sender: ROCHE
  Company Number: US-ROCHE-10000106725

PATIENT
  Age: 53 Year
  Sex: Female
  Weight: 61.23 kg

DRUGS (17)
  1. OCREVUS [Suspect]
     Active Substance: OCRELIZUMAB
     Indication: Relapsing-remitting multiple sclerosis
     Route: 042
     Dates: start: 2018
  2. OCREVUS [Suspect]
     Active Substance: OCRELIZUMAB
     Route: 042
  3. TEMAZEPAM [Concomitant]
     Active Substance: TEMAZEPAM
     Route: 065
  4. CYMBALTA [Concomitant]
     Active Substance: DULOXETINE HYDROCHLORIDE
     Indication: Depression
     Route: 048
     Dates: start: 2001, end: 2019
  5. CYMBALTA [Concomitant]
     Active Substance: DULOXETINE HYDROCHLORIDE
     Indication: Pain
     Route: 048
     Dates: start: 2019, end: 202410
  6. CYMBALTA [Concomitant]
     Active Substance: DULOXETINE HYDROCHLORIDE
     Route: 048
     Dates: start: 202410
  7. LIDEX [Concomitant]
     Active Substance: FLUOCINONIDE
  8. NIZORAL [Concomitant]
     Active Substance: KETOCONAZOLE
  9. LIDODERM [Concomitant]
     Active Substance: LIDOCAINE
  10. ROBAXIN [Concomitant]
     Active Substance: METHOCARBAMOL
  11. ZANAFLEX [Concomitant]
     Active Substance: TIZANIDINE HYDROCHLORIDE
  12. NEXIUM I.V. [Concomitant]
     Active Substance: ESOMEPRAZOLE SODIUM
     Indication: Gastrooesophageal reflux disease
     Route: 048
     Dates: start: 1998
  13. CYMBALTA [Concomitant]
     Active Substance: DULOXETINE HYDROCHLORIDE
     Indication: Depression
     Route: 048
     Dates: start: 2019, end: 202410
  14. CYMBALTA [Concomitant]
     Active Substance: DULOXETINE HYDROCHLORIDE
     Indication: Pain
     Route: 048
     Dates: start: 2001, end: 2019
  15. CYMBALTA [Concomitant]
     Active Substance: DULOXETINE HYDROCHLORIDE
     Route: 048
     Dates: start: 202410
  16. VITAMIN D3 [Concomitant]
     Active Substance: CHOLECALCIFEROL
     Indication: Multiple sclerosis
     Route: 048
     Dates: start: 1997
  17. BIFIDOBACTERIUM ANIMALIS LACTIS [Concomitant]
     Active Substance: BIFIDOBACTERIUM ANIMALIS LACTIS

REACTIONS (14)
  - Weight decreased [Unknown]
  - Diarrhoea [Recovering/Resolving]
  - Gait inability [Recovered/Resolved]
  - Sleep disorder [Recovered/Resolved]
  - Malaise [Unknown]
  - Palpitations [Recovered/Resolved]
  - Spinal column injury [Unknown]
  - Neck pain [Unknown]
  - Stress [Unknown]
  - Nasopharyngitis [Recovered/Resolved]
  - Dysphagia [Recovered/Resolved]
  - Dyspnoea [Recovering/Resolving]
  - Influenza [Recovered/Resolved]
  - Pyrexia [Recovered/Resolved]

NARRATIVE: CASE EVENT DATE: 20240601
